FAERS Safety Report 7407188-9 (Version None)
Quarter: 2011Q2

REPORT INFORMATION
  Report Type: 
  Country: None (occurrence: None)
  Receive Date: 20110411
  Receipt Date: 20110406
  Transmission Date: 20111010
  Serious: Yes (Hospitalization)
  Sender: FDA-Public Use
  Company Number: US-B.I. PHARMACEUTICALS,INC./RIDGEFIELD-2011-BP-10150BP

PATIENT
  Sex: Male

DRUGS (15)
  1. JANUVIA [Concomitant]
     Indication: DIABETES MELLITUS
     Route: 048
  2. METFORMIN HCL [Concomitant]
     Indication: DIABETES MELLITUS
     Dosage: 2550 MG
     Route: 048
  3. SPIRIVA [Suspect]
     Dosage: 18 MCG
     Route: 055
     Dates: end: 20110128
  4. ACIPHEX [Concomitant]
     Indication: BARRETT'S OESOPHAGUS
     Dosage: 20 MG
     Route: 048
  5. TAMSULOSIN HCL [Concomitant]
     Indication: PROSTATOMEGALY
     Dosage: 0.4 MG
     Route: 048
  6. VENTOLIN [Concomitant]
     Indication: EMPHYSEMA
     Route: 055
  7. SPIRIVA [Suspect]
     Indication: EMPHYSEMA
     Dosage: 36 MCG
     Route: 055
     Dates: start: 20100701
  8. VIT D [Concomitant]
     Indication: PROPHYLAXIS
     Route: 048
  9. GABAPENTIN [Concomitant]
     Indication: NEUROPATHY PERIPHERAL
     Dosage: 600 MG
     Route: 048
  10. ALBUTEROL [Concomitant]
     Indication: EMPHYSEMA
     Route: 055
  11. LISINOPRIL [Concomitant]
     Indication: HYPERTENSION
     Dosage: 10 MG
     Route: 048
     Dates: start: 20100101
  12. SPIRIVA [Suspect]
     Dosage: 18 MCG
     Route: 055
     Dates: start: 20110203
  13. GLYBURIDE [Concomitant]
     Indication: DIABETES MELLITUS
     Dosage: 20 MG
     Route: 048
  14. CRESTOR [Concomitant]
     Indication: BLOOD CHOLESTEROL INCREASED
     Dosage: 20 MG
     Route: 048
  15. BUDESONIDE [Concomitant]
     Indication: EMPHYSEMA
     Route: 055

REACTIONS (2)
  - CARDIAC VALVE DISEASE [None]
  - PNEUMONIA [None]
